FAERS Safety Report 5615678-4 (Version None)
Quarter: 2008Q1

REPORT INFORMATION
  Report Type: 
  Country: None (occurrence: None)
  Receive Date: 20080206
  Receipt Date: 20080131
  Transmission Date: 20080703
  Serious: Yes (Hospitalization)
  Sender: FDA-Public Use
  Company Number: IT-MERCK-0802ITA00004

PATIENT
  Sex: Male

DRUGS (1)
  1. SINGULAIR [Suspect]
     Indication: ASTHMA
     Route: 065

REACTIONS (3)
  - ASTHMA [None]
  - DRUG INEFFECTIVE [None]
  - TRANSAMINASES INCREASED [None]
